FAERS Safety Report 4363848-8 (Version None)
Quarter: 2004Q2

REPORT INFORMATION
  Report Type: 
  Country: None (occurrence: None)
  Receive Date: 20040519
  Receipt Date: 20040517
  Transmission Date: 20050107
  Serious: No
  Sender: FDA-Public Use
  Company Number: DE-SHR-04-024893

PATIENT
  Age: 40 Year
  Sex: Female

DRUGS (4)
  1. MIRENA [Suspect]
     Dosage: 20 UG/DAY, CONT, INTRA-UTERINE
     Route: 015
     Dates: start: 20040223
  2. IBUHEXAL [Concomitant]
  3. ACETAMINOPHEN [Concomitant]
  4. VIOXX [Concomitant]

REACTIONS (5)
  - INTRA-UTERINE CONTRACEPTIVE DEVICE EXPELLED [None]
  - MENOMETRORRHAGIA [None]
  - PAIN [None]
  - UTERINE HAEMORRHAGE [None]
  - UTERINE LEIOMYOMA [None]
